FAERS Safety Report 4979217-3 (Version None)
Quarter: 2006Q2

REPORT INFORMATION
  Report Type: 
  Country: None (occurrence: None)
  Receive Date: 20060421
  Receipt Date: 20060308
  Transmission Date: 20061013
  Serious: Yes (Death, Hospitalization)
  Sender: FDA-Public Use
  Company Number: 2006AC00407

PATIENT
  Age: 80 Year
  Sex: Female
  Weight: 65 kg

DRUGS (11)
  1. CRESTOR [Suspect]
     Route: 048
  2. ZYPREXA [Concomitant]
  3. VENOFER [Concomitant]
  4. ASAFLOW [Concomitant]
  5. LORAMET [Concomitant]
  6. DIOVANE [Concomitant]
  7. SOTALOL HCL [Concomitant]
  8. SERESTA [Concomitant]
  9. STATIN [Concomitant]
     Dates: start: 20041001
  10. EPREX [Concomitant]
  11. MOTILIUM [Concomitant]

REACTIONS (2)
  - HEPATIC FAILURE [None]
  - HEPATITIS FULMINANT [None]
